FAERS Safety Report 7935718-7 (Version None)
Quarter: 2011Q4

REPORT INFORMATION
  Report Type: 
  Country: None (occurrence: None)
  Receive Date: 20111123
  Receipt Date: 20111114
  Transmission Date: 20120403
  Serious: Yes (Other)
  Sender: FDA-Public Use
  Company Number: NO-JNJFOC-20110603108

PATIENT
  Sex: Male

DRUGS (5)
  1. CORTISONE ACETATE [Concomitant]
     Indication: PREMEDICATION
     Dates: start: 20110501, end: 20110501
  2. REMICADE [Suspect]
     Route: 042
     Dates: start: 20110526, end: 20110526
  3. REMICADE [Suspect]
     Indication: CROHN'S DISEASE
     Route: 042
     Dates: start: 20110511
  4. REMICADE [Suspect]
     Route: 042
     Dates: start: 20030101
  5. PREDNISOLONE [Concomitant]
     Route: 065

REACTIONS (10)
  - BODY TEMPERATURE INCREASED [None]
  - JOINT STIFFNESS [None]
  - INFUSION RELATED REACTION [None]
  - MALAISE [None]
  - NAUSEA [None]
  - ARTHRALGIA [None]
  - TYPE IV HYPERSENSITIVITY REACTION [None]
  - TRISMUS [None]
  - ANAPHYLACTIC SHOCK [None]
  - FLUSHING [None]
